FAERS Safety Report 6171999-0 (Version None)
Quarter: 2009Q2

REPORT INFORMATION
  Report Type: 
  Country: None (occurrence: None)
  Receive Date: 20090428
  Receipt Date: 20090428
  Transmission Date: 20091009
  Serious: No
  Sender: FDA-Public Use
  Company Number: None

PATIENT
  Age: 39 Year
  Sex: Female
  Weight: 96.6162 kg

DRUGS (4)
  1. PRILOSEC OTC [Suspect]
     Indication: GASTROOESOPHAGEAL REFLUX DISEASE
     Dosage: 20 MG DAILY PO
     Route: 048
     Dates: start: 20090201, end: 20090427
  2. LEVOTHYROXIDE [Concomitant]
  3. OS-CAL PLUS VITAMIN D [Concomitant]
  4. EXCEDRIN (MIGRAINE) [Concomitant]

REACTIONS (1)
  - PALPITATIONS [None]
